FAERS Safety Report 15588257 (Version 4)
Quarter: 2019Q1

REPORT INFORMATION
  Report Type: Report from Study
  Country: US (occurrence: US)
  Receive Date: 20181105
  Receipt Date: 20190123
  Transmission Date: 20190417
  Serious: Yes (Other)
  Sender: FDA-Public Use
  Company Number: US-JAZZ-2018-US-005542

PATIENT
  Sex: Male

DRUGS (8)
  1. XYREM [Suspect]
     Active Substance: SODIUM OXYBATE
     Dosage: 4.5 G, BID
     Route: 048
     Dates: start: 201706
  2. XYREM [Suspect]
     Active Substance: SODIUM OXYBATE
     Indication: NARCOLEPSY
     Dosage: 2.25 G, BID
     Route: 048
     Dates: start: 201705, end: 201705
  3. AMITRIPTYLINE HCL SANDOZ [Concomitant]
     Active Substance: AMITRIPTYLINE HYDROCHLORIDE
  4. XYREM [Suspect]
     Active Substance: SODIUM OXYBATE
     Dosage: 3 G, BID
     Route: 048
  5. LUNESTA [Concomitant]
     Active Substance: ESZOPICLONE
  6. XYREM [Suspect]
     Active Substance: SODIUM OXYBATE
     Dosage: DOSE ADJUSTMENT
     Route: 048
     Dates: start: 201705, end: 201706
  7. TERBINAFINE HCL [Concomitant]
     Active Substance: TERBINAFINE HYDROCHLORIDE
  8. EFFEXOR [Suspect]
     Active Substance: VENLAFAXINE HYDROCHLORIDE
     Indication: DEPRESSION
     Dosage: UNK

REACTIONS (8)
  - Anxiety [Unknown]
  - Depression [Recovered/Resolved]
  - Blood pressure increased [Unknown]
  - Hypersomnia [Unknown]
  - Heart rate increased [Recovered/Resolved]
  - Fatigue [Unknown]
  - Treatment noncompliance [Unknown]
  - Drug tolerance [Unknown]
